FAERS Safety Report 23913181 (Version 1)
Quarter: 2024Q2

REPORT INFORMATION
  Report Type: Spontaneous
  Country: US (occurrence: US)
  Receive Date: 20240529
  Receipt Date: 20240529
  Transmission Date: 20240715
  Serious: No
  Sender: FDA-Public Use
  Company Number: US-SUN PHARMACEUTICAL INDUSTRIES LTD-2024R1-444691

PATIENT
  Age: 7 Year
  Sex: Female
  Weight: 22.676 kg

DRUGS (1)
  1. DEXMETHYLPHENIDATE [Suspect]
     Active Substance: DEXMETHYLPHENIDATE
     Indication: Attention deficit hyperactivity disorder
     Dosage: 15 MG
     Route: 065

REACTIONS (5)
  - Abnormal behaviour [Unknown]
  - Drug ineffective [Unknown]
  - Poor quality product administered [Unknown]
  - Product quality issue [Unknown]
  - Wrong technique in product usage process [Unknown]
